FAERS Safety Report 17076092 (Version 5)
Quarter: 2020Q2

REPORT INFORMATION
  Report Type: Report from Study
  Country: DE (occurrence: DE)
  Receive Date: 20191126
  Receipt Date: 20200407
  Transmission Date: 20200713
  Serious: Yes (Other)
  Sender: FDA-Public Use
  Company Number: DE-PFIZER INC-2019505006

PATIENT
  Age: 37 Year
  Sex: Female

DRUGS (16)
  1. CALCIUM [Concomitant]
     Active Substance: CALCIUM
     Dosage: FORM: CHEWABLE TABLETSTOGETHER WITH VITAMIN D
  2. TOLTERODIN [Concomitant]
     Active Substance: TOLTERODINE TARTRATE
     Dosage: 2 MG, 1X/DAY
     Route: 065
  3. OCREVUS [Suspect]
     Active Substance: OCRELIZUMAB
     Indication: RELAPSING MULTIPLE SCLEROSIS
     Dosage: 300 MG, UNK
     Route: 042
     Dates: start: 20190701
  4. UTROGEST [Suspect]
     Active Substance: PROGESTERONE
     Indication: HORMONE REPLACEMENT THERAPY
     Dosage: HORMONE SUPPLEMENTARY TREATMENT, TOGETHER WITH GYNOKADIN
     Route: 065
     Dates: end: 20190812
  5. GYNOKADIN [ESTRADIOL] [Suspect]
     Active Substance: ESTRADIOL
     Indication: OSTEOPOROSIS
     Dosage: HORMONE SUPPLEMENTARY TREATMENT, TOGETHER WITH UTROGEST
     Route: 065
     Dates: end: 20190812
  6. FOLINIC ACID [Concomitant]
     Active Substance: LEUCOVORIN
  7. FERRUM [FERROUS GLUCONATE] [Concomitant]
  8. FLUVOXAMINE [Concomitant]
     Active Substance: FLUVOXAMINE
     Dosage: 25 MG, 1X/DAY
     Route: 065
  9. UTROGEST [Suspect]
     Active Substance: PROGESTERONE
     Indication: OSTEOPOROSIS
     Dosage: 100 MG, 1X/DAY
     Route: 065
  10. CALCIUM [Concomitant]
     Active Substance: CALCIUM
     Dosage: FORM: CHEWABLE TABLETSTOGETHER WITH VITAMIN D
     Route: 065
  11. ESTRADIOL. [Suspect]
     Active Substance: ESTRADIOL
     Indication: OSTEOPOROSIS
     Dosage: 0.6 MG, UNK
     Route: 065
  12. FLUVOXAMINE [Concomitant]
     Active Substance: FLUVOXAMINE
     Dosage: 25 MG, 1X/DAY
     Route: 065
  13. ESTRADIOL. [Suspect]
     Active Substance: ESTRADIOL
     Dosage: 0.6 MG, UNK
     Route: 065
  14. OCREVUS [Suspect]
     Active Substance: OCRELIZUMAB
     Indication: SECONDARY PROGRESSIVE MULTIPLE SCLEROSIS
     Dosage: 300 MG, UNK
     Route: 042
     Dates: start: 20200106
  15. FLUVOXAMINE [Concomitant]
     Active Substance: FLUVOXAMINE
     Dosage: 25 MG, 1X/DAY
  16. GYNOKADIN [ESTRADIOL] [Suspect]
     Active Substance: ESTRADIOL
     Indication: HORMONE REPLACEMENT THERAPY

REACTIONS (38)
  - Anxiety [Not Recovered/Not Resolved]
  - Migraine [Recovered/Resolved]
  - Nausea [Not Recovered/Not Resolved]
  - Fluid retention [Recovering/Resolving]
  - Insomnia [Recovered/Resolved]
  - Vision blurred [Recovered/Resolved]
  - Product use in unapproved indication [Unknown]
  - Musculoskeletal stiffness [Recovered/Resolved]
  - White blood cell count decreased [Recovered/Resolved]
  - Muscular weakness [Not Recovered/Not Resolved]
  - Off label use [Unknown]
  - Coordination abnormal [Not Recovered/Not Resolved]
  - Nerve compression [Unknown]
  - Throat irritation [Recovered/Resolved]
  - Urinary incontinence [Not Recovered/Not Resolved]
  - Gait disturbance [Recovered/Resolved]
  - Fatigue [Recovered/Resolved]
  - Panic attack [Not Recovered/Not Resolved]
  - Myalgia [Not Recovered/Not Resolved]
  - Paraesthesia [Recovering/Resolving]
  - Arthralgia [Not Recovered/Not Resolved]
  - Headache [Recovered/Resolved]
  - Salivary hypersecretion [Recovered/Resolved]
  - Visual impairment [Recovered/Resolved]
  - Nasopharyngitis [Recovered/Resolved]
  - Cardiovascular insufficiency [Not Recovered/Not Resolved]
  - Chest pain [Recovered/Resolved]
  - Food poisoning [Recovered/Resolved]
  - Blood pressure decreased [Recovered/Resolved]
  - Headache [Not Recovered/Not Resolved]
  - Limb discomfort [Recovering/Resolving]
  - Nail bed inflammation [Recovered/Resolved]
  - Visual field defect [Recovered/Resolved]
  - Circulatory collapse [Recovered/Resolved]
  - Multiple sclerosis relapse [Unknown]
  - Weight decreased [Recovered/Resolved]
  - Skin burning sensation [Recovered/Resolved]
  - Depression [Recovered/Resolved]

NARRATIVE: CASE EVENT DATE: 20190701
